FAERS Safety Report 19270590 (Version 3)
Quarter: 2024Q4

REPORT INFORMATION
  Report Type: Report from Study
  Country: JP (occurrence: JP)
  Receive Date: 20210518
  Receipt Date: 20241211
  Transmission Date: 20250114
  Serious: Yes (Other)
  Sender: ABBVIE
  Company Number: JP-TAKEDA-2019TJP028254

PATIENT
  Age: 60 Year
  Sex: Male
  Weight: 65.9 kg

DRUGS (15)
  1. LEUPROLIDE ACETATE [Suspect]
     Active Substance: LEUPROLIDE ACETATE
     Indication: Bulbospinal muscular atrophy congenital
     Dosage: 11.25 MILLIGRAM, Q3MONTHS
     Route: 058
     Dates: start: 20180521, end: 20181105
  2. LEUPROLIDE ACETATE [Suspect]
     Active Substance: LEUPROLIDE ACETATE
     Dosage: 5.6 MILLIGRAM, Q3MONTHS
     Route: 058
     Dates: start: 20190225, end: 20190225
  3. LEUPROLIDE ACETATE [Suspect]
     Active Substance: LEUPROLIDE ACETATE
     Dosage: 1.88 MILLIGRAM, Q3MONTHS
     Route: 058
     Dates: start: 20190513, end: 20190513
  4. LEUPROLIDE ACETATE [Suspect]
     Active Substance: LEUPROLIDE ACETATE
     Dosage: 11.25 MILLIGRAM, Q3MONTHS
     Route: 058
     Dates: start: 20190708
  5. INDOMETHACIN [Concomitant]
     Active Substance: INDOMETHACIN
     Indication: Arthralgia
     Dosage: 50 MILLILITER
     Route: 065
     Dates: start: 20220711, end: 20220925
  6. INDOMETHACIN [Concomitant]
     Active Substance: INDOMETHACIN
     Indication: Arthralgia
  7. METHYLCOBALAMIN [Concomitant]
     Active Substance: METHYLCOBALAMIN
     Indication: Bulbospinal muscular atrophy congenital
     Dosage: 1500 MICROGRAM
     Route: 065
  8. AMBROXOL HYDROCHLORIDE [Concomitant]
     Active Substance: AMBROXOL HYDROCHLORIDE
     Indication: Bulbospinal muscular atrophy congenital
     Dosage: 45 MILLIGRAM
     Route: 065
  9. DIETARY SUPPLEMENT\UBIDECARENONE [Concomitant]
     Active Substance: DIETARY SUPPLEMENT\UBIDECARENONE
     Indication: Bulbospinal muscular atrophy congenital
     Dosage: 30 MILLIGRAM
     Route: 065
  10. TOCOPHERYL NICOTINATE, D-.ALPHA. [Concomitant]
     Active Substance: TOCOPHERYL NICOTINATE, D-.ALPHA.
     Indication: Bulbospinal muscular atrophy congenital
     Dosage: 600 MILLIGRAM
     Route: 065
  11. ADETPHOS [Concomitant]
     Active Substance: ADENOSINE TRIPHOSPHATE
     Indication: Bulbospinal muscular atrophy congenital
     Dosage: 60 MILLIGRAM
     Route: 065
  12. CAMPHOR\CAPSICUM\METHYL SALICYLATE [Concomitant]
     Active Substance: CAMPHOR\CAPSICUM\METHYL SALICYLATE
     Indication: Arthralgia
     Dosage: 5 DOSAGE FORM
     Route: 065
     Dates: start: 20220711, end: 20220925
  13. CAMPHOR\CAPSICUM\METHYL SALICYLATE [Concomitant]
     Active Substance: CAMPHOR\CAPSICUM\METHYL SALICYLATE
     Indication: Arthralgia
  14. ZINC OXIDE [Concomitant]
     Active Substance: ZINC OXIDE
     Indication: Arthralgia
     Dosage: 50 GRAM
     Route: 065
     Dates: start: 20220711, end: 20220925
  15. ZINC OXIDE [Concomitant]
     Active Substance: ZINC OXIDE
     Indication: Arthralgia

REACTIONS (3)
  - Diabetes mellitus [Recovering/Resolving]
  - Underdose [Unknown]
  - Injection site granuloma [Recovering/Resolving]

NARRATIVE: CASE EVENT DATE: 20180813
